FAERS Safety Report 4433827-0 (Version None)
Quarter: 2004Q3

REPORT INFORMATION
  Report Type: 
  Country: None (occurrence: None)
  Receive Date: 20040826
  Receipt Date: 20040824
  Transmission Date: 20050211
  Serious: Yes (Hospitalization)
  Sender: FDA-Public Use
  Company Number: FR-ROCHE-378457

PATIENT
  Age: 69 Year
  Sex: Female
  Weight: 62 kg

DRUGS (5)
  1. IBANDRONIC ACID [Suspect]
     Indication: OSTEOPOROSIS POSTMENOPAUSAL
     Dosage: MONTHLY ORAL DOSE START ON 02 AUG 2002 AND WAS DISCONTINUED ON 03 JULY 2004. DAILY DOSE WAS DISCONT+
     Route: 048
     Dates: start: 20020731
  2. CAPTOPRIL [Concomitant]
     Dates: start: 19880615
  3. ASPIRIN [Concomitant]
     Dates: start: 19920615
  4. ESBERIVEN [Concomitant]
     Dates: start: 20040105
  5. PARACETAMOL [Concomitant]
     Dates: start: 20040201

REACTIONS (1)
  - NEUROPATHY [None]
